FAERS Safety Report 5542462-2 (Version None)
Quarter: 2007Q4

REPORT INFORMATION
  Report Type: 
  Country: None (occurrence: None)
  Receive Date: 20071210
  Receipt Date: 20071128
  Transmission Date: 20080405
  Serious: Yes (Other)
  Sender: FDA-Public Use
  Company Number: JP-ELI_LILLY_AND_COMPANY-JP200712001099

PATIENT
  Age: 50 Year
  Sex: Male

DRUGS (2)
  1. GEMZAR [Suspect]
     Indication: METASTASES TO LIVER
     Route: 013
     Dates: start: 20070101
  2. FLUOROURACIL [Concomitant]
     Indication: METASTASES TO LIVER
     Route: 013
     Dates: start: 20070101

REACTIONS (1)
  - CATHETER RELATED COMPLICATION [None]
